FAERS Safety Report 6441107-7 (Version None)
Quarter: 2009Q4

REPORT INFORMATION
  Report Type: 
  Country: None (occurrence: None)
  Receive Date: 20091116
  Receipt Date: 20091110
  Transmission Date: 20100525
  Serious: Yes (Other)
  Sender: FDA-Public Use
  Company Number: US-ROCHE-668303

PATIENT
  Sex: Male
  Weight: 63.5 kg

DRUGS (1)
  1. CAPECITABINE [Suspect]
     Indication: COLON CANCER
     Route: 048
     Dates: start: 20090217

REACTIONS (2)
  - MALIGNANT NEOPLASM PROGRESSION [None]
  - TUMOUR MARKER INCREASED [None]
